FAERS Safety Report 16056308 (Version 2)
Quarter: 2019Q2

REPORT INFORMATION
  Report Type: Spontaneous
  Country: US (occurrence: US)
  Receive Date: 20190311
  Receipt Date: 20190409
  Transmission Date: 20190711
  Serious: No
  Sender: FDA-Public Use
  Company Number: US-ASTRAZENECA-2019SE24429

PATIENT
  Age: 10817 Day
  Sex: Male
  Weight: 88.5 kg

DRUGS (3)
  1. PULMICORT FLEXHALER [Suspect]
     Active Substance: BUDESONIDE
     Indication: ASTHMA
     Route: 055
     Dates: start: 2017
  2. ADVAIR HFA [Concomitant]
     Active Substance: FLUTICASONE PROPIONATE\SALMETEROL XINAFOATE
     Indication: RESPIRATORY THERAPY
     Dosage: AS REQUIRED
     Route: 055
     Dates: start: 2016
  3. PULMICORT FLEXHALER [Suspect]
     Active Substance: BUDESONIDE
     Indication: ASTHMA
     Route: 055
     Dates: start: 20180502

REACTIONS (8)
  - Asthma [Unknown]
  - Wrong technique in product usage process [Unknown]
  - Malaise [Unknown]
  - Device malfunction [Unknown]
  - Circumstance or information capable of leading to device use error [Unknown]
  - Off label use [Unknown]
  - Intentional device misuse [Unknown]
  - Wheezing [Unknown]

NARRATIVE: CASE EVENT DATE: 20190131
